FAERS Safety Report 4299671-2 (Version None)
Quarter: 2004Q1

REPORT INFORMATION
  Report Type: 
  Country: None (occurrence: None)
  Receive Date: 20040126
  Receipt Date: 20030924
  Transmission Date: 20041129
  Serious: No
  Sender: FDA-Public Use
  Company Number: USA030948160

PATIENT
  Age: 9 Year
  Sex: Female
  Weight: 36 kg

DRUGS (1)
  1. STRATTERA [Suspect]
     Dosage: 50 MG/DAY
     Dates: start: 20030401, end: 20030915

REACTIONS (3)
  - ABDOMINAL PAIN UPPER [None]
  - DRUG WITHDRAWAL HEADACHE [None]
  - HEADACHE [None]
